FAERS Safety Report 24801549 (Version 3)
Quarter: 2025Q1

REPORT INFORMATION
  Report Type: Spontaneous
  Country: US (occurrence: US)
  Receive Date: 20250102
  Receipt Date: 20250331
  Transmission Date: 20250408
  Serious: Yes (Other)
  Sender: PFIZER
  Company Number: US-PFIZER INC-202500000170

PATIENT
  Age: 77 Year
  Sex: Female

DRUGS (21)
  1. IBRANCE [Suspect]
     Active Substance: PALBOCICLIB
     Indication: Breast cancer female
  2. IBRANCE [Suspect]
     Active Substance: PALBOCICLIB
     Route: 048
     Dates: start: 20241224
  3. ALBUTEROL [Concomitant]
     Active Substance: ALBUTEROL
  4. ANASTROZOLE [Concomitant]
     Active Substance: ANASTROZOLE
  5. CETIRIZINE [Concomitant]
     Active Substance: CETIRIZINE HYDROCHLORIDE
  6. DILTIAZEM [Concomitant]
     Active Substance: DILTIAZEM
  7. ATROPINE\DIPHENOXYLATE [Concomitant]
     Active Substance: ATROPINE\DIPHENOXYLATE
  8. DULOXETINE [Concomitant]
     Active Substance: DULOXETINE
  9. ELIQUIS [Concomitant]
     Active Substance: APIXABAN
  10. EPINEPHRINE [Concomitant]
     Active Substance: EPINEPHRINE
  11. LOSARTAN [Concomitant]
     Active Substance: LOSARTAN
  12. MIRTAZAPINE [Concomitant]
     Active Substance: MIRTAZAPINE
  13. NALOXONE [Concomitant]
     Active Substance: NALOXONE
  14. OMEPRAZOLE [Concomitant]
     Active Substance: OMEPRAZOLE
  15. ONDANSETRON [Concomitant]
     Active Substance: ONDANSETRON
  16. OXYCODONE AND ACETAMINOPHEN [Concomitant]
     Active Substance: ACETAMINOPHEN\OXYCODONE HYDROCHLORIDE
  17. ROSUVASTATIN [Concomitant]
     Active Substance: ROSUVASTATIN
  18. TRAZODONE [Concomitant]
     Active Substance: TRAZODONE HYDROCHLORIDE
  19. TRELEGY ELLIPTA [Concomitant]
     Active Substance: FLUTICASONE FUROATE\UMECLIDINIUM BROMIDE\VILANTEROL TRIFENATATE
  20. TRIAMCINOLONE [Concomitant]
     Active Substance: TRIAMCINOLONE
  21. XGEVA [Concomitant]
     Active Substance: DENOSUMAB

REACTIONS (4)
  - Neutropenia [Not Recovered/Not Resolved]
  - Dyspnoea [Unknown]
  - Fatigue [Not Recovered/Not Resolved]
  - Product dose omission in error [Unknown]

NARRATIVE: CASE EVENT DATE: 20250225
